FAERS Safety Report 13727373 (Version 3)
Quarter: 2017Q3

REPORT INFORMATION
  Report Type: Report from Study
  Country: US (occurrence: US)
  Receive Date: 20170707
  Receipt Date: 20170831
  Transmission Date: 20171127
  Serious: Yes (Death, Hospitalization)
  Sender: FDA-Public Use
  Company Number: PHEH2017US020754

PATIENT
  Age: 69 Year
  Sex: Male
  Weight: 106.4 kg

DRUGS (2)
  1. MEKINIST [Suspect]
     Active Substance: TRAMETINIB DIMETHYL SULFOXIDE
     Indication: METASTATIC MALIGNANT MELANOMA
     Dosage: UNK
     Route: 065
     Dates: end: 20170519
  2. TAFINLAR [Suspect]
     Active Substance: DABRAFENIB MESYLATE
     Indication: METASTATIC MALIGNANT MELANOMA
     Dosage: UNK
     Route: 065
     Dates: end: 20170519

REACTIONS (13)
  - Lymphocyte count decreased [Unknown]
  - Haemoglobin decreased [Unknown]
  - Blood calcium increased [Unknown]
  - Red blood cell count decreased [Unknown]
  - Malignant pleural effusion [Unknown]
  - Blood sodium decreased [Unknown]
  - Metastases to liver [Fatal]
  - Metastases to bone [Fatal]
  - Blood urea increased [Unknown]
  - Blood chloride decreased [Unknown]
  - Haematocrit decreased [Unknown]
  - Metastases to lung [Fatal]
  - Red cell distribution width increased [Unknown]

NARRATIVE: CASE EVENT DATE: 20170515
